FAERS Safety Report 18087405 (Version 1)
Quarter: 2020Q3

REPORT INFORMATION
  Report Type: Spontaneous
  Country: GB (occurrence: GB)
  Receive Date: 20200729
  Receipt Date: 20200729
  Transmission Date: 20201103
  Serious: Yes (Hospitalization, Other)
  Sender: FDA-Public Use
  Company Number: GB-PFIZER INC-2020282900

PATIENT
  Age: 64 Year
  Sex: Female
  Weight: 73 kg

DRUGS (1)
  1. OXALIPLATIN. [Suspect]
     Active Substance: OXALIPLATIN
     Indication: RECTAL CANCER
     Dosage: 250 MG
     Route: 042
     Dates: start: 20200528, end: 20200618

REACTIONS (12)
  - Blood potassium decreased [Recovered/Resolved]
  - Diplopia [Recovered/Resolved]
  - Dysphagia [Recovered/Resolved]
  - Muscle spasms [Recovered/Resolved]
  - Hemiparesis [Recovered/Resolved]
  - Neurological symptom [Recovered/Resolved]
  - Laryngospasm [Recovered/Resolved]
  - Tachycardia [Recovered/Resolved]
  - Chest discomfort [Recovered/Resolved]
  - Pain in extremity [Recovered/Resolved]
  - Eye pain [Recovered/Resolved]
  - Dysarthria [Recovered/Resolved]

NARRATIVE: CASE EVENT DATE: 2020
